FAERS Safety Report 7220311-4 (Version None)
Quarter: 2011Q1

REPORT INFORMATION
  Report Type: 
  Country: None (occurrence: None)
  Receive Date: 20110111
  Receipt Date: 20110103
  Transmission Date: 20110831
  Serious: Yes (Hospitalization)
  Sender: FDA-Public Use
  Company Number: US-ASTRAZENECA-2011SE00132

PATIENT
  Age: 71 Year
  Sex: Male

DRUGS (2)
  1. ZETIA [Concomitant]
     Dates: start: 20090101
  2. CRESTOR [Suspect]
     Route: 048
     Dates: start: 20070101

REACTIONS (2)
  - COLON NEOPLASM [None]
  - RHINORRHOEA [None]
